FAERS Safety Report 9403143 (Version 1)
Quarter: 2013Q3

REPORT INFORMATION
  Report Type: Spontaneous
  Country: US (occurrence: None)
  Receive Date: 20130715
  Receipt Date: 20130715
  Transmission Date: 20140515
  Serious: Yes (Other)
  Sender: FDA-Public Use
  Company Number: None

PATIENT
  Age: 44 Year
  Sex: Female
  Weight: 96.16 kg

DRUGS (7)
  1. HYDROXYCHLOROQUINE [Suspect]
     Indication: SYSTEMIC LUPUS ERYTHEMATOSUS
     Route: 048
     Dates: start: 20090429, end: 20090513
  2. SYNTHROID [Concomitant]
  3. BO-TOX INJECTIONS [Concomitant]
  4. PROVENTIL INHALER [Concomitant]
  5. ALEVE [Concomitant]
  6. MOTRIN [Concomitant]
  7. IBUPROFEN [Concomitant]

REACTIONS (2)
  - Urticaria [None]
  - Dyspnoea [None]
